FAERS Safety Report 22364631 (Version 1)
Quarter: 2023Q2

REPORT INFORMATION
  Report Type: Spontaneous
  Country: US (occurrence: US)
  Receive Date: 20230525
  Receipt Date: 20230525
  Transmission Date: 20230722
  Serious: Yes (Hospitalization, Other)
  Sender: FDA-Public Use
  Company Number: US-SUN PHARMACEUTICAL INDUSTRIES LTD-2023R1-390078

PATIENT
  Age: 49 Year
  Sex: Female

DRUGS (11)
  1. FERROUS SULFATE [Suspect]
     Active Substance: FERROUS SULFATE
     Indication: Supplementation therapy
     Dosage: UNK (19%)
     Route: 065
  2. ASCORBIC ACID [Suspect]
     Active Substance: ASCORBIC ACID
     Indication: Supplementation therapy
     Dosage: UNK (100%)
     Route: 065
  3. CHOLECALCIFEROL [Suspect]
     Active Substance: CHOLECALCIFEROL
     Indication: Supplementation therapy
     Dosage: UNK (100%)
     Route: 065
  4. MAGNESIUM [Suspect]
     Active Substance: MAGNESIUM
     Indication: Supplementation therapy
     Dosage: UNK (29%)
     Route: 065
  5. VITAMIN B COMPLEX [Suspect]
     Active Substance: CYANOCOBALAMIN\DEXPANTHENOL\NIACINAMIDE\PYRIDOXINE HYDROCHLORIDE\RIBOFLAVIN 5^-PHOSPHATE SODIUM\THIA
     Indication: Supplementation therapy
     Dosage: UNK (100%)
     Route: 065
  6. CALCIUM [Suspect]
     Active Substance: CALCIUM
     Indication: Supplementation therapy
     Dosage: UNK (37%)
     Route: 065
  7. THIAMINE [Suspect]
     Active Substance: THIAMINE
     Indication: Supplementation therapy
     Dosage: 450 MILLIGRAM, DAILY
     Route: 048
  8. THIAMINE [Suspect]
     Active Substance: THIAMINE
     Dosage: 150 MILLIGRAM, BID
     Route: 048
  9. VITAMIN A [Suspect]
     Active Substance: VITAMIN A
     Indication: Supplementation therapy
     Dosage: UNK (100%)
     Route: 065
  10. VITAMIN B12 [Suspect]
     Active Substance: CYANOCOBALAMIN
     Indication: Supplementation therapy
     Dosage: UNK (100 MCG, GIVEN EVERY 3 MONTHS)
     Route: 058
  11. VITAMIN E [Suspect]
     Active Substance: .ALPHA.-TOCOPHEROL
     Indication: Supplementation therapy
     Dosage: UNK (100%)
     Route: 065

REACTIONS (1)
  - Encephalopathy [Recovered/Resolved]
